FAERS Safety Report 8033638-3 (Version None)
Quarter: 2012Q1

REPORT INFORMATION
  Report Type: 
  Country: None (occurrence: None)
  Receive Date: 20120110
  Receipt Date: 20120106
  Transmission Date: 20120608
  Serious: No
  Sender: FDA-Public Use
  Company Number: US-PFIZER INC-2012004993

PATIENT
  Sex: Female
  Weight: 63.5 kg

DRUGS (3)
  1. LYRICA [Suspect]
     Indication: TENDONITIS
     Dosage: 75 MG, DAILY AT NIGHT
     Route: 048
     Dates: start: 20120105
  2. DIOVAN [Concomitant]
     Indication: HYPERTENSION
     Dosage: 320 MG, DAILY
  3. DIOVAN [Concomitant]
     Indication: HEPATITIS C

REACTIONS (1)
  - DIZZINESS [None]
